FAERS Safety Report 15451663 (Version 3)
Quarter: 2018Q4

REPORT INFORMATION
  Report Type: Spontaneous
  Country: CA (occurrence: CA)
  Receive Date: 20181001
  Receipt Date: 20181011
  Transmission Date: 20190204
  Serious: Yes (Hospitalization)
  Sender: FDA-Public Use
  Company Number: CA-PFIZER INC-2018392439

PATIENT
  Age: 56 Year
  Sex: Male

DRUGS (15)
  1. SALVENT [SALBUTAMOL] [Concomitant]
     Dosage: 1 DF (INHALATION), 4X/DAY FOR 7 DAYS
     Route: 055
  2. SALOFALK [MESALAZINE] [Concomitant]
     Dosage: 1 DF (SUPPOSITORY), 1X/DAY AT BED TIME
  3. CALCIUM+VITAMIN D3 [Concomitant]
     Active Substance: CALCIUM\CHOLECALCIFEROL
     Dosage: 1 DF (TABLET), 2X/DAY(CALCIUM 500 MG/COLECALCIFEROL 400 U)
     Route: 048
     Dates: start: 20180801, end: 20180925
  4. JAMP OLMESARTAN [Concomitant]
     Dosage: 40 MG, 1X/DAY AT BREAKFAST
     Route: 048
  5. SYNTHROID [Concomitant]
     Active Substance: LEVOTHYROXINE SODIUM
     Dosage: 0.112MG, IN THE MORNING
     Route: 048
  6. PREDNISONE. [Concomitant]
     Active Substance: PREDNISONE
     Dosage: TAPERING 1 TABLET PER WEEK UNTIL THE END
     Route: 048
  7. SERTRALINE HCL [Suspect]
     Active Substance: SERTRALINE HYDROCHLORIDE
     Dosage: 1 CAPSULE OF 100 MG AT DINNER WITH 1 CAPSULE OF 25 MG
     Route: 048
  8. SULFATE FERREUX [Concomitant]
     Dosage: 300 MG, 1X/DAY AT LUNCH
     Route: 048
  9. QUETIAPINE XR [Concomitant]
     Active Substance: QUETIAPINE
     Dosage: 200MG, AT DINNER
     Route: 048
  10. HYDROMORPHONE [Concomitant]
     Active Substance: HYDROMORPHONE
     Indication: PAIN
     Dosage: 1 MG EVERY 4 HOURS, AS NEEDED
     Route: 048
  11. DEXILANT [Concomitant]
     Active Substance: DEXLANSOPRAZOLE
     Dosage: 60 MG, 1X/DAY AT BREAKFAST
     Route: 048
  12. PURINETHOL [Concomitant]
     Active Substance: MERCAPTOPURINE
     Dosage: 50 MG, 2 DF (TABLETS), AT BEDTIME
     Route: 048
  13. CALCIUM + VIT D [Concomitant]
     Active Substance: CALCIUM\VITAMIN D
     Dosage: [CALCIUM CARBONATE 500 MG]/[VITAMIN D NOS 1000 U], 1 TABLET BID
     Route: 048
     Dates: start: 20180926
  14. PREDNISONE. [Concomitant]
     Active Substance: PREDNISONE
     Dosage: 5 MG, 8 DF (TABLETS), UNK
     Route: 048
     Dates: start: 20180725, end: 20180807
  15. JAMP DICYCLOMINE HCL [Concomitant]
     Dosage: 10 MG, 4X/DAY
     Route: 048

REACTIONS (3)
  - Pyrexia [Recovered/Resolved]
  - Infection [Unknown]
  - Colitis [Unknown]
